FAERS Safety Report 7816915-8 (Version None)
Quarter: 2011Q4

REPORT INFORMATION
  Report Type: 
  Country: None (occurrence: None)
  Receive Date: 20111017
  Receipt Date: 20111003
  Transmission Date: 20120403
  Serious: Yes (Hospitalization, Other)
  Sender: FDA-Public Use
  Company Number: US-BAYER-201039149NA

PATIENT
  Age: 33 Year
  Sex: Female
  Weight: 107 kg

DRUGS (12)
  1. XANAX [Concomitant]
  2. EFFEXOR [Concomitant]
  3. MEDROXYPROGESTERONE [Concomitant]
  4. PROMETRIUM [Concomitant]
  5. SOMA [Concomitant]
  6. ROBAXIN [Concomitant]
  7. YASMIN [Suspect]
     Indication: ENDOMETRIOSIS
     Dosage: UNK UNK, UNK
     Route: 048
     Dates: start: 20030101, end: 20070101
  8. BUPROPION HYDROCHLORIDE [Concomitant]
  9. VICODIN [Concomitant]
  10. BUSPIRONE HCL [Concomitant]
  11. YASMIN [Suspect]
     Indication: MENSTRUATION IRREGULAR
  12. PROPOXYPHENE HYDROCHLORIDE [Concomitant]

REACTIONS (5)
  - CHOLECYSTITIS CHRONIC [None]
  - BILIARY DYSKINESIA [None]
  - PELVIC PAIN [None]
  - GALLBLADDER NON-FUNCTIONING [None]
  - DYSFUNCTIONAL UTERINE BLEEDING [None]
